FAERS Safety Report 6200033-9 (Version None)
Quarter: 2009Q2

REPORT INFORMATION
  Report Type: 
  Country: None (occurrence: None)
  Receive Date: 20090522
  Receipt Date: 20090518
  Transmission Date: 20091009
  Serious: Yes (Death)
  Sender: FDA-Public Use
  Company Number: GB-MERCK-0903GBR00082

PATIENT
  Age: 49 Year
  Sex: Female
  Weight: 112 kg

DRUGS (5)
  1. RITONAVIR [Concomitant]
     Indication: HIV INFECTION
     Route: 065
     Dates: start: 20090129, end: 20090216
  2. KALETRA [Concomitant]
     Indication: HIV INFECTION
     Route: 048
     Dates: start: 20090216, end: 20090301
  3. DARUNAVIR [Concomitant]
     Indication: HIV INFECTION
     Route: 065
     Dates: start: 20090129, end: 20090216
  4. ETRAVIRINE [Concomitant]
     Route: 065
     Dates: start: 20090129, end: 20090216
  5. ISENTRESS [Suspect]
     Indication: HIV INFECTION
     Route: 048
     Dates: start: 20090129, end: 20090301

REACTIONS (1)
  - STEVENS-JOHNSON SYNDROME [None]
